FAERS Safety Report 5241312-1 (Version None)
Quarter: 2007Q1

REPORT INFORMATION
  Report Type: 
  Country: None (occurrence: None)
  Receive Date: 20070220
  Receipt Date: 20070209
  Transmission Date: 20070707
  Serious: Yes (Other)
  Sender: FDA-Public Use
  Company Number: PT-JNJFOC-20070202191

PATIENT
  Age: 46 Year
  Sex: Female
  Weight: 74 kg

DRUGS (3)
  1. TOPIRAMATE [Suspect]
     Indication: BIPOLAR DISORDER
     Route: 048
  2. ESCITALOPRAM [Concomitant]
     Indication: DEPRESSION
     Route: 065
  3. MEXAZOLAM [Concomitant]
     Route: 065

REACTIONS (1)
  - HYPOTHERMIA [None]
